FAERS Safety Report 7744787-9 (Version None)
Quarter: 2011Q3

REPORT INFORMATION
  Report Type: 
  Country: None (occurrence: None)
  Receive Date: 20110912
  Receipt Date: 20110912
  Transmission Date: 20111222
  Serious: Yes (Hospitalization)
  Sender: FDA-Public Use
  Company Number: None

PATIENT
  Age: 72 Year
  Sex: Female
  Weight: 68.946 kg

DRUGS (1)
  1. HALDOL [Suspect]
     Indication: MENTAL DISORDER
     Dates: start: 20031014, end: 20110728

REACTIONS (6)
  - GAIT DISTURBANCE [None]
  - VICTIM OF ELDER ABUSE [None]
  - TARDIVE DYSKINESIA [None]
  - BREATH SOUNDS ABNORMAL [None]
  - NIGHTMARE [None]
  - NERVE INJURY [None]
